FAERS Safety Report 16072612 (Version 1)
Quarter: 2019Q1

REPORT INFORMATION
  Report Type: Spontaneous
  Country: US (occurrence: US)
  Receive Date: 20190314
  Receipt Date: 20190314
  Transmission Date: 20190418
  Serious: Yes (Death, Hospitalization)
  Sender: FDA-Public Use
  Company Number: US-ROCHE-2282143

PATIENT
  Sex: Male
  Weight: 74.91 kg

DRUGS (1)
  1. ESBRIET [Suspect]
     Active Substance: PIRFENIDONE
     Indication: IDIOPATHIC PULMONARY FIBROSIS
     Route: 065
     Dates: start: 2016, end: 201608

REACTIONS (4)
  - Loss of consciousness [Unknown]
  - Drug intolerance [Unknown]
  - Acute respiratory distress syndrome [Fatal]
  - Nausea [Unknown]
